FAERS Safety Report 23841680 (Version 1)
Quarter: 2024Q2

REPORT INFORMATION
  Report Type: Report from Study
  Country: CA (occurrence: None)
  Receive Date: 20240510
  Receipt Date: 20240510
  Transmission Date: 20240715
  Serious: Yes (Hospitalization, Other)
  Sender: FDA-Public Use
  Company Number: 2024A103283

PATIENT
  Sex: Female

DRUGS (2)
  1. CALQUENCE [Suspect]
     Active Substance: ACALABRUTINIB
     Indication: Chronic lymphocytic leukaemia
     Route: 048
     Dates: start: 20240311, end: 20240426
  2. APIXABAN [Concomitant]
     Active Substance: APIXABAN

REACTIONS (3)
  - Dyspnoea [Unknown]
  - Haemoglobin decreased [Unknown]
  - Contusion [Recovering/Resolving]
